FAERS Safety Report 7330659-0 (Version None)
Quarter: 2011Q1

REPORT INFORMATION
  Report Type: 
  Country: None (occurrence: None)
  Receive Date: 20110225
  Receipt Date: 20110225
  Transmission Date: 20110831
  Serious: Yes (Hospitalization, Disabling)
  Sender: FDA-Public Use
  Company Number: None

PATIENT
  Age: 75 Year
  Sex: Male
  Weight: 99.3377 kg

DRUGS (8)
  1. NKDA [Concomitant]
  2. LASIX [Concomitant]
  3. POTASSIUM CHLORIDE [Concomitant]
  4. VYTORIN [Concomitant]
  5. BENICAR HCT [Concomitant]
  6. ACTOS [Concomitant]
  7. PRADAXA [Suspect]
     Indication: ATRIAL FIBRILLATION
     Dates: start: 20110204, end: 20110221
  8. XANAX [Concomitant]

REACTIONS (8)
  - PROTHROMBIN TIME PROLONGED [None]
  - HAEMORRHOIDAL HAEMORRHAGE [None]
  - RECTAL HAEMORRHAGE [None]
  - FLUID RETENTION [None]
  - COUGH [None]
  - ACTIVATED PARTIAL THROMBOPLASTIN TIME PROLONGED [None]
  - DYSPNOEA [None]
  - INTERNATIONAL NORMALISED RATIO INCREASED [None]
